FAERS Safety Report 15974487 (Version 3)
Quarter: 2019Q2

REPORT INFORMATION
  Report Type: Spontaneous
  Country: AE (occurrence: AE)
  Receive Date: 20190218
  Receipt Date: 20190620
  Transmission Date: 20190711
  Serious: Yes (Hospitalization, Other)
  Sender: FDA-Public Use
  Company Number: AE-AMGEN-ARESP2019012271

PATIENT
  Age: 48 Year
  Sex: Female

DRUGS (8)
  1. OXYTOCIN. [Concomitant]
     Active Substance: OXYTOCIN
     Indication: HAEMORRHAGE
     Dosage: 5 MILLIGRAM, BID (2X/DAY AS NEEDED), DURATION 10 DAYS
     Route: 048
     Dates: end: 20190210
  2. TRAMAL RETARD [Concomitant]
     Active Substance: TRAMADOL
     Indication: PAIN MANAGEMENT
     Dosage: 100 MILLIGRAM, BID (2X/DAY AS NEEDED), DURATION 14 DAYS
     Route: 048
     Dates: end: 20190214
  3. CELEBREX [Concomitant]
     Active Substance: CELECOXIB
     Indication: PAIN MANAGEMENT
     Dosage: 200 MILLIGRAM, BID 2X/DAY (DURATION 14 DAYS)
     Route: 048
     Dates: end: 20190214
  4. ENBREL [Suspect]
     Active Substance: ETANERCEPT
     Indication: PRODUCT USED FOR UNKNOWN INDICATION
     Dosage: 50 MILLIGRAM, ONCE EVERY 10 DAYS
     Route: 058
     Dates: start: 20170912, end: 201901
  5. ENBREL [Suspect]
     Active Substance: ETANERCEPT
     Dosage: 50 MILLIGRAM, QWK
     Route: 058
     Dates: start: 2019, end: 201906
  6. ROSUVASTATIN CALCIUM. [Concomitant]
     Active Substance: ROSUVASTATIN CALCIUM
     Indication: HYPERLIPIDAEMIA
     Dosage: 10 MILLIGRAM, QD
     Dates: start: 2018
  7. METFORMIN HYDROCHLORIDE. [Concomitant]
     Active Substance: METFORMIN HYDROCHLORIDE
     Indication: DIABETES MELLITUS
     Dosage: 1000 MILLIGRAM (EVERY 12 HRS) SINCE ONE YEAR
     Route: 048
     Dates: start: 2018
  8. DULAGLUTIDE. [Concomitant]
     Active Substance: DULAGLUTIDE
     Indication: DIABETES MELLITUS
     Dosage: 1.5 MILLIGRAM, QWK SINCE 3 MONTHS
     Route: 058
     Dates: start: 201810

REACTIONS (4)
  - Drug ineffective [Unknown]
  - Product use issue [Unknown]
  - Off label use [Unknown]
  - Tendon rupture [Recovered/Resolved]

NARRATIVE: CASE EVENT DATE: 20170912
